FAERS Safety Report 5197639-5 (Version None)
Quarter: 2007Q1

REPORT INFORMATION
  Report Type: 
  Country: None (occurrence: None)
  Receive Date: 20070103
  Receipt Date: 20061227
  Transmission Date: 20070707
  Serious: Yes (Hospitalization)
  Sender: FDA-Public Use
  Company Number: DE-PFIZER INC-2006153457

PATIENT
  Sex: Male
  Weight: 136 kg

DRUGS (3)
  1. REVATIO [Suspect]
     Indication: PULMONARY HYPERTENSION
     Dosage: DAILY DOSE:60MG
     Route: 048
  2. INSULIN [Concomitant]
  3. CORTISONE ACETATE [Concomitant]
     Route: 048

REACTIONS (1)
  - ANAEMIA MACROCYTIC [None]
